FAERS Safety Report 10620603 (Version 2)
Quarter: 2014Q4

REPORT INFORMATION
  Report Type: Spontaneous
  Country: GB (occurrence: GB)
  Receive Date: 20141202
  Receipt Date: 20141202
  Transmission Date: 20150529
  Serious: Yes (Other)
  Sender: FDA-Public Use
  Company Number: GB-009507513-1411GBR004180

PATIENT
  Age: 25 Year
  Sex: Female
  Weight: 59 kg

DRUGS (1)
  1. NEXPLANON [Suspect]
     Active Substance: ETONOGESTREL
     Indication: CONTRACEPTION
     Dosage: UNK
     Route: 059
     Dates: start: 20130215, end: 20140922

REACTIONS (5)
  - Discomfort [Recovered/Resolved]
  - Swelling [Recovered/Resolved]
  - Rash [Recovered/Resolved]
  - Skin fissures [Recovered/Resolved]
  - Implant site dermatitis [Unknown]

NARRATIVE: CASE EVENT DATE: 20140129
